FAERS Safety Report 4881458-0 (Version None)
Quarter: 2005Q4

REPORT INFORMATION
  Report Type: 
  Country: None (occurrence: None)
  Receive Date: 20051201
  Receipt Date: 20050727
  Transmission Date: 20060501
  Serious: No
  Sender: FDA-Public Use
  Company Number: 2005PV000645

PATIENT
  Age: 62 Year
  Sex: Male
  Weight: 131.5431 kg

DRUGS (8)
  1. BYETTA [Suspect]
     Indication: DIABETES MELLITUS
     Dosage: 5 MCG;BID;SC
     Route: 058
     Dates: start: 20050721
  2. GLUCOVANCE [Concomitant]
  3. ACTOS [Concomitant]
  4. LOTREL [Concomitant]
  5. COREG [Concomitant]
  6. LASIX [Concomitant]
  7. ASPIRIN [Concomitant]
  8. VYTORIN [Concomitant]

REACTIONS (4)
  - FEELING JITTERY [None]
  - HEADACHE [None]
  - NAUSEA [None]
  - SLEEP DISORDER [None]
